FAERS Safety Report 8909122 (Version 1)
Quarter: 2012Q4

REPORT INFORMATION
  Report Type: 
  Country: US (occurrence: US)
  Receive Date: 20121113
  Receipt Date: 20121113
  Transmission Date: 20130627
  Serious: No
  Sender: FDA-Public Use
  Company Number: US-AMGEN-USASP2012011267

PATIENT
  Age: 57 Year
  Sex: Female
  Weight: 84.35 kg

DRUGS (8)
  1. ENBREL [Suspect]
     Indication: PRODUCT USED FOR UNKNOWN INDICATION
     Dosage: 50 mg, qwk
     Route: 058
  2. METHOTREXATE [Concomitant]
     Dosage: 2.5 mg, UNK
  3. BENAZEPRIL [Concomitant]
     Dosage: 1. mg, UNK
  4. CLOTRIMAZOLE [Concomitant]
  5. TOPROL [Concomitant]
     Dosage: 25 mg, UNK
  6. FISH OIL [Concomitant]
  7. MULTIVITAMIN                       /00097801/ [Concomitant]
  8. FOLIC ACID [Concomitant]

REACTIONS (1)
  - Urticaria [Unknown]
